FAERS Safety Report 22325304 (Version 1)
Quarter: 2023Q2

REPORT INFORMATION
  Report Type: Spontaneous
  Country: ES (occurrence: ES)
  Receive Date: 20230516
  Receipt Date: 20230516
  Transmission Date: 20230721
  Serious: Yes (Other)
  Sender: FDA-Public Use
  Company Number: None

PATIENT
  Age: 84 Year
  Sex: Male

DRUGS (2)
  1. LEVOFLOXACIN [Suspect]
     Active Substance: LEVOFLOXACIN
     Indication: Infective exacerbation of bronchiectasis
     Dosage: 500MG, (1 TABLET) EACH 12 HOURS
     Route: 042
     Dates: start: 20230107, end: 20230110
  2. CEFTRIAXONE [Suspect]
     Active Substance: CEFTRIAXONE
     Indication: Infective exacerbation of bronchiectasis
     Dosage: 2 GRAM (1 VIAL) EACH 18 HOURS
     Route: 042
     Dates: start: 20230106, end: 20230110

REACTIONS (1)
  - Hepatic cytolysis [Recovered/Resolved]

NARRATIVE: CASE EVENT DATE: 20230110
